FAERS Safety Report 19204450 (Version 1)
Quarter: 2021Q2

REPORT INFORMATION
  Report Type: Spontaneous
  Country: US (occurrence: US)
  Receive Date: 20210503
  Receipt Date: 20210503
  Transmission Date: 20210717
  Serious: No
  Sender: FDA-Public Use
  Company Number: US-ALKEM LABORATORIES LIMITED-US-ALKEM-2020-01191

PATIENT
  Age: 86 Year
  Sex: Male

DRUGS (1)
  1. LIDOCAINE. [Suspect]
     Active Substance: LIDOCAINE
     Indication: ARRHYTHMIA
     Dosage: 15.6 MICROGRAMS/ML
     Route: 042

REACTIONS (2)
  - Delayed recovery from anaesthesia [Recovered/Resolved]
  - Overdose [Unknown]
